FAERS Safety Report 17770750 (Version 5)
Quarter: 2020Q3

REPORT INFORMATION
  Report Type: Spontaneous
  Country: US (occurrence: US)
  Receive Date: 20200512
  Receipt Date: 20200903
  Transmission Date: 20201102
  Serious: Yes (Hospitalization, Other)
  Sender: FDA-Public Use
  Company Number: US-SA-2020SA120671

PATIENT

DRUGS (36)
  1. FUROSEMIDE. [Concomitant]
     Active Substance: FUROSEMIDE
  2. AMETHYST [Concomitant]
     Active Substance: ETHINYL ESTRADIOL\LEVONORGESTREL
  3. DICLOFENAC [Concomitant]
     Active Substance: DICLOFENAC
  4. SYMBICORT [Concomitant]
     Active Substance: BUDESONIDE\FORMOTEROL FUMARATE DIHYDRATE
  5. CELECOXIB. [Concomitant]
     Active Substance: CELECOXIB
  6. ALBUTEROL [SALBUTAMOL] [Concomitant]
     Active Substance: ALBUTEROL
  7. DUPIXENT [Suspect]
     Active Substance: DUPILUMAB
     Indication: ASTHMA
     Dosage: 600 MG, 1X
     Route: 058
     Dates: start: 20200416, end: 20200416
  8. TRAMADOL. [Concomitant]
     Active Substance: TRAMADOL
  9. XIIDRA [Concomitant]
     Active Substance: LIFITEGRAST
     Route: 047
  10. DUPIXENT [Suspect]
     Active Substance: DUPILUMAB
     Dosage: 300 MG, QOW
     Route: 058
     Dates: start: 2020, end: 2020
  11. ULTRACET [Concomitant]
     Active Substance: ACETAMINOPHEN\TRAMADOL HYDROCHLORIDE
  12. COLACE [Concomitant]
     Active Substance: DOCUSATE SODIUM
  13. MAXZIDE [Concomitant]
     Active Substance: HYDROCHLOROTHIAZIDE\TRIAMTERENE
  14. METFORMIN [Concomitant]
     Active Substance: METFORMIN HYDROCHLORIDE
  15. PREDNISONE. [Concomitant]
     Active Substance: PREDNISONE
  16. SPIRONOLACTONE. [Concomitant]
     Active Substance: SPIRONOLACTONE
  17. DEXILANT [Concomitant]
     Active Substance: DEXLANSOPRAZOLE
  18. DULOXETINE. [Concomitant]
     Active Substance: DULOXETINE
  19. CLONIDINE. [Concomitant]
     Active Substance: CLONIDINE
  20. TALTZ [Concomitant]
     Active Substance: IXEKIZUMAB
  21. ORENCIA [Concomitant]
     Active Substance: ABATACEPT
  22. ABATACEPT [Concomitant]
     Active Substance: ABATACEPT
  23. DUPIXENT [Suspect]
     Active Substance: DUPILUMAB
     Dosage: 300 MG, QOW
     Route: 058
     Dates: start: 2020
  24. NEXIUM I.V. [Concomitant]
     Active Substance: ESOMEPRAZOLE SODIUM
  25. VITAMIN B12 [Concomitant]
     Active Substance: CYANOCOBALAMIN
  26. CITALOPRAM [Concomitant]
     Active Substance: CITALOPRAM HYDROBROMIDE
  27. SAXENDA [Concomitant]
     Active Substance: LIRAGLUTIDE
  28. TRIAMCINOLON [TRIAMCINOLONE] [Concomitant]
     Active Substance: TRIAMCINOLONE
  29. ONDANSETRON [Concomitant]
     Active Substance: ONDANSETRON
  30. MOTEGRITY [Concomitant]
     Active Substance: PRUCALOPRIDE SUCCINATE
  31. FEBUXOSTAT. [Concomitant]
     Active Substance: FEBUXOSTAT
  32. TRAZODONE [Concomitant]
     Active Substance: TRAZODONE HYDROCHLORIDE
  33. COLCHICINE. [Concomitant]
     Active Substance: COLCHICINE
  34. AMOXICILLIN. [Concomitant]
     Active Substance: AMOXICILLIN
  35. POTASSIUM CHLORIDE. [Concomitant]
     Active Substance: POTASSIUM CHLORIDE
  36. MAXID [Concomitant]

REACTIONS (9)
  - Cellulitis [Not Recovered/Not Resolved]
  - Asthma [Not Recovered/Not Resolved]
  - Hypersensitivity [Not Recovered/Not Resolved]
  - Tooth infection [Not Recovered/Not Resolved]
  - Swelling face [Not Recovered/Not Resolved]
  - Tooth abscess [Not Recovered/Not Resolved]
  - Fatigue [Not Recovered/Not Resolved]
  - Product dose omission issue [Unknown]
  - Product use issue [Unknown]

NARRATIVE: CASE EVENT DATE: 2020
